FAERS Safety Report 12442834 (Version 1)
Quarter: 2016Q2

REPORT INFORMATION
  Report Type: Spontaneous
  Country: US (occurrence: None)
  Receive Date: 20160606
  Receipt Date: 20160606
  Transmission Date: 20160815
  Serious: Yes (Disabling)
  Sender: FDA-Public Use
  Company Number: None

PATIENT
  Age: 52 Year
  Sex: Female
  Weight: 54.43 kg

DRUGS (1)
  1. CIPRODEX [Suspect]
     Active Substance: CIPROFLOXACIN HYDROCHLORIDE\DEXAMETHASONE
     Indication: INFECTION PROPHYLAXIS
     Dosage: INTO THE EAR
     Dates: start: 20160101, end: 20160209

REACTIONS (3)
  - Ear discomfort [None]
  - Ear pain [None]
  - Tinnitus [None]

NARRATIVE: CASE EVENT DATE: 20160202
